FAERS Safety Report 16364567 (Version 1)
Quarter: 2019Q2

REPORT INFORMATION
  Report Type: Spontaneous
  Country: US (occurrence: US)
  Receive Date: 20190529
  Receipt Date: 20190529
  Transmission Date: 20190711
  Serious: No
  Sender: FDA-Public Use
  Company Number: US-MEDIMETRIKS-2018-US-011961

PATIENT
  Age: 24 Year
  Sex: Female
  Weight: 52.16 kg

DRUGS (1)
  1. FLUOCINOLONE ACETONIDE TOPICAL [Suspect]
     Active Substance: FLUOCINOLONE ACETONIDE
     Indication: DRY SKIN
     Dosage: APPLIED TO SCALP EACH DAY
     Route: 061
     Dates: start: 20180702, end: 20180703

REACTIONS (1)
  - Alopecia [Recovering/Resolving]

NARRATIVE: CASE EVENT DATE: 20180703
